FAERS Safety Report 13192753 (Version 2)
Quarter: 2017Q1

REPORT INFORMATION
  Report Type: Spontaneous
  Country: JP (occurrence: JP)
  Receive Date: 20170207
  Receipt Date: 20170221
  Transmission Date: 20170428
  Serious: Yes (Death)
  Sender: FDA-Public Use
  Company Number: JP-PFIZER INC-2017045936

PATIENT
  Age: 61 Year
  Sex: Male

DRUGS (2)
  1. MEROPENEM. [Concomitant]
     Active Substance: MEROPENEM
     Indication: ACUTE LUNG INJURY
     Dosage: 1 G, UNK
  2. METHYLPREDNISOLONE SODIUM SUCCINATE. [Suspect]
     Active Substance: METHYLPREDNISOLONE SODIUM SUCCINATE
     Indication: ACUTE LUNG INJURY
     Dosage: 1000 MG, PULSE
     Route: 042

REACTIONS (2)
  - Disease progression [Fatal]
  - Phaeochromocytoma [Fatal]
